FAERS Safety Report 7618899-4 (Version None)
Quarter: 2011Q3

REPORT INFORMATION
  Report Type: 
  Country: None (occurrence: None)
  Receive Date: 20110718
  Receipt Date: 20110712
  Transmission Date: 20111222
  Serious: Yes (Hospitalization, Other)
  Sender: FDA-Public Use
  Company Number: CH-PFIZER INC-2011158315

PATIENT
  Age: 31 Year
  Sex: Female

DRUGS (8)
  1. VINCRISTINE [Concomitant]
     Dosage: 2 MG, UNK
  2. PREDNISONE [Concomitant]
     Dosage: 60 MG/M2, UNK
  3. METHOTREXATE [Concomitant]
     Route: 037
  4. CYCLOPHOSPHAMIDE [Concomitant]
     Dosage: 750 MG/M2, UNK
  5. PREDNISOLONE [Concomitant]
     Route: 039
  6. DOXORUBICIN HCL [Suspect]
     Dosage: 14.5 MG, UNK
     Route: 037
  7. DAUNORUBICIN [Concomitant]
     Dosage: 30 MG/M2, UNK
  8. CYTARABINE [Concomitant]
     Route: 039

REACTIONS (2)
  - WRONG DRUG ADMINISTERED [None]
  - MYELOPATHY [None]
